FAERS Safety Report 11823874 (Version 5)
Quarter: 2016Q2

REPORT INFORMATION
  Report Type: Spontaneous
  Country: JP (occurrence: JP)
  Receive Date: 20151210
  Receipt Date: 20160401
  Transmission Date: 20160815
  Serious: Yes (Death, Other)
  Sender: FDA-Public Use
  Company Number: JP-OTSUKA-2015_016050

PATIENT
  Age: 92 Year
  Sex: Female

DRUGS (11)
  1. URSODEOXYCHOLIC ACID [Concomitant]
     Active Substance: URSODIOL
     Indication: PRODUCT USED FOR UNKNOWN INDICATION
     Dosage: UNK
     Route: 065
  2. GLUCAGON. [Concomitant]
     Active Substance: GLUCAGON
     Indication: HEPATIC FUNCTION ABNORMAL
     Dosage: UNK
     Route: 042
     Dates: start: 20151130
  3. ALDACTONE A [Concomitant]
     Active Substance: SPIRONOLACTONE
     Indication: PRODUCT USED FOR UNKNOWN INDICATION
     Dosage: 25 MG, DAILY DOSE
     Route: 048
     Dates: start: 201204, end: 20151127
  4. SAMSCA [Suspect]
     Active Substance: TOLVAPTAN
     Indication: CARDIAC FAILURE
     Dosage: 7.5 MG, DAILY DOSE
     Route: 048
     Dates: start: 20151126, end: 20151127
  5. VERAPAMIL HYDROCHLORIDE. [Suspect]
     Active Substance: VERAPAMIL HYDROCHLORIDE
     Indication: PRODUCT USED FOR UNKNOWN INDICATION
     Dosage: 80 MG, DAILY DOSE
     Route: 048
     Dates: start: 20151125, end: 20151127
  6. FUROSEMIDE. [Concomitant]
     Active Substance: FUROSEMIDE
     Indication: PRODUCT USED FOR UNKNOWN INDICATION
     Dosage: 40 MG, DAILY DOSE
     Route: 048
     Dates: start: 201204, end: 20151127
  7. INSULIN [Concomitant]
     Active Substance: INSULIN NOS
     Indication: HEPATIC FUNCTION ABNORMAL
     Dosage: UNK
     Route: 058
     Dates: start: 20151130
  8. STRONGER NEO MINOPHAGEN C [Concomitant]
     Indication: PRODUCT USED FOR UNKNOWN INDICATION
     Dosage: UNK
     Route: 065
  9. MINOPHAGEN C [Concomitant]
     Indication: HEPATIC FUNCTION ABNORMAL
     Dosage: 100 ML, DAILY DOSE
     Route: 042
     Dates: start: 20151127, end: 20151202
  10. NIKORANMART [Concomitant]
     Active Substance: NICORANDIL
     Indication: PRODUCT USED FOR UNKNOWN INDICATION
     Dosage: 10 MG, DAILY DOSE
     Route: 048
     Dates: start: 201204, end: 20151127
  11. BISOPROLOL [Concomitant]
     Active Substance: BISOPROLOL
     Indication: PRODUCT USED FOR UNKNOWN INDICATION
     Dosage: 4 MG, DAILY DOSE
     Route: 062
     Dates: start: 201510, end: 20151127

REACTIONS (12)
  - Vomiting [Fatal]
  - Amylase increased [Fatal]
  - Renal impairment [Fatal]
  - Hepatitis fulminant [Fatal]
  - Shock [Fatal]
  - Abdominal pain [Fatal]
  - Disseminated intravascular coagulation [Fatal]
  - Malaise [Fatal]
  - Hepatic function abnormal [Fatal]
  - Blood creatine phosphokinase increased [Fatal]
  - Subdural haematoma [Fatal]
  - Multiple organ dysfunction syndrome [Fatal]

NARRATIVE: CASE EVENT DATE: 20151126
